FAERS Safety Report 22633519 (Version 1)
Quarter: 2023Q2

REPORT INFORMATION
  Report Type: Spontaneous
  Country: US (occurrence: US)
  Receive Date: 20230623
  Receipt Date: 20230623
  Transmission Date: 20230721
  Serious: Yes (Other)
  Sender: FDA-Public Use
  Company Number: US-MYLANLABS-2023M1063198

PATIENT
  Sex: Female
  Weight: 77.1 kg

DRUGS (3)
  1. XANAX [Suspect]
     Active Substance: ALPRAZOLAM
     Indication: Adrenal insufficiency
     Dosage: 0.25 MILLIGRAM
     Route: 065
  2. XANAX [Suspect]
     Active Substance: ALPRAZOLAM
     Dosage: 0.5 MILLIGRAM
     Route: 065
  3. XANAX [Suspect]
     Active Substance: ALPRAZOLAM
     Dosage: 1 MILLIGRAM
     Route: 065

REACTIONS (2)
  - Seizure [Unknown]
  - Off label use [Unknown]
